FAERS Safety Report 5222660-8 (Version None)
Quarter: 2007Q1

REPORT INFORMATION
  Report Type: 
  Country: None (occurrence: None)
  Receive Date: 20070124
  Receipt Date: 20070112
  Transmission Date: 20070707
  Serious: Yes (Hospitalization)
  Sender: FDA-Public Use
  Company Number: 2007-00092

PATIENT
  Age: 62 Year
  Sex: Male
  Weight: 78 kg

DRUGS (3)
  1. VELCADE [Suspect]
     Indication: MULTIPLE MYELOMA
     Dosage: 1.30 MG/M2, UNK, UNKNOWN
     Dates: start: 20061120, end: 20061221
  2. DEXAMETHASONE [Suspect]
     Indication: MULTIPLE MYELOMA
     Dosage: 40.00 MG, UNK, UNKNOWN
     Dates: start: 20061120, end: 20061222
  3. KARDEGIC(ACETYLSALICYLATE LYSINE) [Suspect]
     Indication: DRUG USE FOR UNKNOWN INDICATION
     Dosage: UNK, UNK, UNKNOWN

REACTIONS (6)
  - ANAEMIA [None]
  - ANOREXIA [None]
  - ASTHENIA [None]
  - GASTROINTESTINAL HAEMORRHAGE [None]
  - GENERAL PHYSICAL HEALTH DETERIORATION [None]
  - THROMBOCYTOPENIA [None]
